FAERS Safety Report 7608336-8 (Version None)
Quarter: 2011Q3

REPORT INFORMATION
  Report Type: 
  Country: None (occurrence: None)
  Receive Date: 20110714
  Receipt Date: 20110629
  Transmission Date: 20111222
  Serious: No
  Sender: FDA-Public Use
  Company Number: US-B.I. PHARMACEUTICALS,INC./RIDGEFIELD-2011-BP-16685BP

PATIENT
  Sex: Female

DRUGS (5)
  1. DIGOXIN [Suspect]
     Indication: ATRIAL FIBRILLATION
  2. PROTONIX [Concomitant]
  3. FUROSEMIDE [Concomitant]
     Indication: HYPERTENSION
  4. METOPROLOL SUCCINATE [Suspect]
     Indication: HEART RATE IRREGULAR
  5. PRADAXA [Suspect]
     Indication: ATRIAL FIBRILLATION
     Dosage: 300 MG
     Route: 048
     Dates: start: 20110201

REACTIONS (2)
  - PAIN IN EXTREMITY [None]
  - GOUT [None]
